FAERS Safety Report 7208600-0 (Version None)
Quarter: 2011Q1

REPORT INFORMATION
  Report Type: 
  Country: None (occurrence: None)
  Receive Date: 20110104
  Receipt Date: 20101224
  Transmission Date: 20110831
  Serious: Yes (Other)
  Sender: FDA-Public Use
  Company Number: JP-BAYER-2010-007836

PATIENT
  Sex: Male
  Weight: 59 kg

DRUGS (12)
  1. NEXAVAR [Suspect]
     Indication: HEPATIC NEOPLASM MALIGNANT
     Dosage: DAILY DOSE 800 MG
     Route: 048
     Dates: start: 20100927, end: 20101015
  2. NEXAVAR [Suspect]
     Dosage: DAILY DOSE 400 MG
     Dates: start: 20101106, end: 20101217
  3. MAGLAX [Concomitant]
     Dosage: DAILY DOSE 990 MG
     Route: 048
  4. BARACLUDE [Concomitant]
     Dosage: DAILY DOSE .5 MG
     Route: 048
     Dates: start: 20100921
  5. FAMOTIDINE [Concomitant]
     Dosage: DAILY DOSE 40 MG
     Route: 048
  6. ASPIRIN [Concomitant]
     Dosage: DAILY DOSE 100 MG
     Route: 048
     Dates: start: 20101015
  7. LAXOBERON [Concomitant]
     Dosage: UNK
     Route: 048
  8. AMOBAN [Concomitant]
     Dosage: 7.5 MG, PRN
     Route: 048
  9. LASIX [Concomitant]
     Dosage: DAILY DOSE 20 MG
     Route: 048
     Dates: start: 20100923
  10. ALDACTONE [Concomitant]
     Dosage: DAILY DOSE 25 MG
     Route: 048
     Dates: start: 20100923
  11. KERATINAMIN [Concomitant]
     Dosage: UNK
     Route: 061
     Dates: start: 20100922
  12. EVAMYL [Concomitant]
     Dosage: DAILY DOSE 1 MG
     Route: 048
     Dates: start: 20101105

REACTIONS (9)
  - DIARRHOEA [None]
  - DECREASED APPETITE [None]
  - PALMAR-PLANTAR ERYTHRODYSAESTHESIA SYNDROME [None]
  - ENCEPHALOPATHY [None]
  - RASH [None]
  - EAR DISCOMFORT [None]
  - FATIGUE [None]
  - ALOPECIA [None]
  - DYSGEUSIA [None]
